FAERS Safety Report 9819244 (Version 3)
Quarter: 2014Q1

REPORT INFORMATION
  Report Type: Report from Study
  Country: US (occurrence: US)
  Receive Date: 20140115
  Receipt Date: 20140204
  Transmission Date: 20141002
  Serious: Yes (Hospitalization)
  Sender: FDA-Public Use
  Company Number: US-ACTELION-A-US2014-93602

PATIENT
  Age: 65 Year
  Sex: Male

DRUGS (2)
  1. VENTAVIS [Suspect]
     Indication: PULMONARY ARTERIAL HYPERTENSION
     Dosage: 2.5 MCG, , 6-9XDAY
     Route: 055
     Dates: start: 201401, end: 201401
  2. VENTAVIS [Suspect]
     Dosage: 5 MCG, 6-9 X DAY
     Route: 055
     Dates: start: 20140124

REACTIONS (4)
  - Pulmonary oedema [Recovering/Resolving]
  - Dialysis [Recovering/Resolving]
  - Renal failure [Recovering/Resolving]
  - Oedema peripheral [Unknown]
